FAERS Safety Report 15241518 (Version 1)
Quarter: 2018Q3

REPORT INFORMATION
  Report Type: Spontaneous
  Country: US (occurrence: US)
  Receive Date: 20180712
  Receipt Date: 20180712
  Transmission Date: 20181010
  Serious: No
  Sender: FDA-Public Use
  Company Number: None

PATIENT
  Age: 31 Year
  Sex: Female
  Weight: 54 kg

DRUGS (2)
  1. NITROFURANTOIN. [Suspect]
     Active Substance: NITROFURANTOIN
     Indication: URINARY TRACT INFECTION
     Dosage: ?          QUANTITY:20 CAPSULE(S);?
     Route: 048
     Dates: start: 20180621, end: 20180701
  2. NATURE MADE PRENATAL MULTI + DHA [Concomitant]

REACTIONS (6)
  - Nephrolithiasis [None]
  - Pain in extremity [None]
  - Limb discomfort [None]
  - White blood cells urine positive [None]
  - Exposure during pregnancy [None]
  - Blood iron decreased [None]

NARRATIVE: CASE EVENT DATE: 20180701
